FAERS Safety Report 8514876-X (Version None)
Quarter: 2012Q3

REPORT INFORMATION
  Report Type: 
  Country: None (occurrence: None)
  Receive Date: 20120717
  Receipt Date: 20120711
  Transmission Date: 20120928
  Serious: Yes (Hospitalization, Other)
  Sender: FDA-Public Use
  Company Number: US-ROCHE-1067853

PATIENT
  Age: 20 Year
  Sex: Female
  Weight: 72.4 kg

DRUGS (2)
  1. VISMODEGIB [Suspect]
     Dosage: DRUG STOPPED
     Route: 048
  2. VISMODEGIB [Suspect]
     Indication: MEDULLOBLASTOMA
     Dosage: TOTAL DOSE ADMINISTERED 5700MG IN COURSE 1, LAST ADMINISTERED DATE: 09/APR/2012
     Route: 048
     Dates: start: 20120322

REACTIONS (2)
  - NECK PAIN [None]
  - BACK PAIN [None]
